FAERS Safety Report 9455755 (Version 1)
Quarter: 2013Q3

REPORT INFORMATION
  Report Type: Spontaneous
  Country: KR (occurrence: KR)
  Receive Date: 20130813
  Receipt Date: 20130813
  Transmission Date: 20140515
  Serious: Yes (Hospitalization)
  Sender: FDA-Public Use
  Company Number: KR-BAYER-2013-096604

PATIENT
  Sex: Male

DRUGS (2)
  1. NEXAVAR [Suspect]
     Dosage: UNK
     Dates: end: 2013
  2. NEXAVAR [Suspect]
     Dosage: UNK
     Dates: start: 2013

REACTIONS (7)
  - Gait disturbance [None]
  - Skin exfoliation [None]
  - Skin reaction [None]
  - Palmar-plantar erythrodysaesthesia syndrome [Not Recovered/Not Resolved]
  - Myalgia [None]
  - Muscular weakness [None]
  - Musculoskeletal disorder [None]
